FAERS Safety Report 4865680-5 (Version None)
Quarter: 2005Q4

REPORT INFORMATION
  Report Type: 
  Country: None (occurrence: None)
  Receive Date: 20051220
  Receipt Date: 20051213
  Transmission Date: 20060501
  Serious: Yes (Hospitalization)
  Sender: FDA-Public Use
  Company Number: AZAUS200500412

PATIENT
  Age: 90 Year
  Sex: Male
  Weight: 66.5 kg

DRUGS (1)
  1. VIDAZA [Suspect]
     Indication: MYELODYSPLASTIC SYNDROME
     Dosage: 75 MG/M2 (125 MG), SUBCUTANEOUS
     Route: 058
     Dates: start: 20051031

REACTIONS (1)
  - CHOLELITHIASIS [None]
